FAERS Safety Report 5344316-3 (Version None)
Quarter: 2007Q2

REPORT INFORMATION
  Report Type: 
  Country: None (occurrence: None)
  Receive Date: 20070604
  Receipt Date: 20070522
  Transmission Date: 20071010
  Serious: Yes (Hospitalization)
  Sender: FDA-Public Use
  Company Number: US-ROCHE-460538

PATIENT
  Age: 54 Year
  Sex: Male

DRUGS (8)
  1. FUZEON [Suspect]
     Indication: DRUG USE FOR UNKNOWN INDICATION
     Route: 065
  2. FUZEON [Suspect]
     Route: 065
  3. VIREAD [Suspect]
     Indication: DRUG USE FOR UNKNOWN INDICATION
     Route: 065
  4. VIDEX [Concomitant]
     Indication: DRUG USE FOR UNKNOWN INDICATION
  5. MEDOVIR [Concomitant]
     Route: 065
  6. UNSPECIFIED DRUG [Concomitant]
     Dosage: DRUG WAS REPORTED AS PRESISTER
     Route: 065
  7. NORVIR [Concomitant]
     Indication: DRUG USE FOR UNKNOWN INDICATION
     Route: 065
  8. UNSPECIFIED MEDICATIONS [Concomitant]
     Dosage: REPORTED AS HIV MEDS NOS.
     Route: 065

REACTIONS (11)
  - DEPRESSION [None]
  - DYSPNOEA [None]
  - FATIGUE [None]
  - LYMPHADENOPATHY [None]
  - MUSCULOSKELETAL PAIN [None]
  - MUSCULOSKELETAL STIFFNESS [None]
  - NO ADVERSE EFFECT [None]
  - OEDEMA PERIPHERAL [None]
  - RENAL DISORDER [None]
  - SINUS DISORDER [None]
  - WRONG TECHNIQUE IN DRUG USAGE PROCESS [None]
